FAERS Safety Report 15811841 (Version 1)
Quarter: 2019Q1

REPORT INFORMATION
  Report Type: Spontaneous
  Country: IT (occurrence: IT)
  Receive Date: 20190111
  Receipt Date: 20190111
  Transmission Date: 20190417
  Serious: Yes (Other)
  Sender: FDA-Public Use
  Company Number: IT-TEVA-2019-IT-997182

PATIENT
  Age: 91 Year
  Sex: Female

DRUGS (8)
  1. PREVEX [Concomitant]
  2. TIROSINT [Concomitant]
     Active Substance: LEVOTHYROXINE SODIUM
  3. COAPROVEL 300 MG/12.5 MG FILM-COATED TABLETS [Concomitant]
  4. OLANZAPINE. [Suspect]
     Active Substance: OLANZAPINE
     Indication: ACUTE PSYCHOSIS
     Dosage: 5 MILLIGRAM DAILY;
     Route: 048
     Dates: start: 20180823, end: 20180825
  5. TORVAST [Concomitant]
     Active Substance: ATORVASTATIN
  6. HUMALOG [Concomitant]
     Active Substance: INSULIN LISPRO
  7. LANTUS [Concomitant]
     Active Substance: INSULIN GLARGINE
  8. LEVODOPA [Concomitant]
     Active Substance: LEVODOPA

REACTIONS (3)
  - Hallucination [Recovering/Resolving]
  - Suicidal behaviour [Recovering/Resolving]
  - Delirium [Recovering/Resolving]

NARRATIVE: CASE EVENT DATE: 20180825
